FAERS Safety Report 8672756 (Version 3)
Quarter: 2013Q4

REPORT INFORMATION
  Report Type: Spontaneous
  Country: US (occurrence: US)
  Receive Date: 20120703
  Receipt Date: 20131031
  Transmission Date: 20140711
  Serious: Yes (Hospitalization, Other)
  Sender: FDA-Public Use
  Company Number: US-009507513-2012SP036036

PATIENT
  Sex: Female

DRUGS (2)
  1. VICTRELIS [Suspect]
     Indication: HEPATITIS C
     Route: 048
  2. DIOVAN [Concomitant]

REACTIONS (2)
  - Hypotension [Recovering/Resolving]
  - Anaemia [Recovering/Resolving]
